FAERS Safety Report 16699108 (Version 1)
Quarter: 2019Q3

REPORT INFORMATION
  Report Type: Spontaneous
  Country: DE (occurrence: DE)
  Receive Date: 20190813
  Receipt Date: 20190813
  Transmission Date: 20191004
  Serious: Yes (Other)
  Sender: FDA-Public Use
  Company Number: DE-GILEAD-2019-0415164

PATIENT
  Age: 67 Year

DRUGS (1)
  1. AXICABTAGENE CILOLEUCEL [Suspect]
     Active Substance: AXICABTAGENE CILOLEUCEL
     Indication: PRODUCT USED FOR UNKNOWN INDICATION
     Dosage: UNK
     Route: 042
     Dates: start: 20181219, end: 20181219

REACTIONS (3)
  - Subileus [Recovered/Resolved]
  - Cytokine release syndrome [Unknown]
  - Cytokine storm [Recovered/Resolved]

NARRATIVE: CASE EVENT DATE: 20181228
